FAERS Safety Report 8454915-8 (Version None)
Quarter: 2012Q2

REPORT INFORMATION
  Report Type: 
  Country: None (occurrence: None)
  Receive Date: 20120614
  Receipt Date: 20120614
  Transmission Date: 20120825
  Serious: Yes (Life-Threatening, Hospitalization)
  Sender: FDA-Public Use
  Company Number: None

PATIENT
  Age: 74 Year
  Sex: Female
  Weight: 56 kg

DRUGS (7)
  1. COMBIVENT [Concomitant]
  2. XARELTO [Suspect]
     Dosage: 20MG DAILY PO
     Route: 048
  3. LASIX [Concomitant]
  4. POTASSIUM CHLORIDE [Concomitant]
  5. MULTLAQ [Concomitant]
  6. CARDIZEM CD [Concomitant]
  7. XARELTO [Concomitant]

REACTIONS (4)
  - DYSPNOEA [None]
  - GASTROINTESTINAL HAEMORRHAGE [None]
  - ANAEMIA [None]
  - ATRIAL FIBRILLATION [None]
